FAERS Safety Report 15374599 (Version 4)
Quarter: 2019Q2

REPORT INFORMATION
  Report Type: Spontaneous
  Country: US (occurrence: US)
  Receive Date: 20180912
  Receipt Date: 20190529
  Transmission Date: 20190711
  Serious: Yes (Other)
  Sender: FDA-Public Use
  Company Number: US-PFIZER INC-2018364343

PATIENT
  Age: 51 Year
  Sex: Female
  Weight: 63.5 kg

DRUGS (1)
  1. CLEOCIN [Suspect]
     Active Substance: CLINDAMYCIN PHOSPHATE
     Indication: BACTERIAL INFECTION
     Dosage: 100 MG, 1X/DAY (100MG 1 VAGINAL SUPPOSITORY ONCE AT NIGHT FOR 3 NIGHTS)
     Dates: start: 20180527

REACTIONS (13)
  - Vomiting [Not Recovered/Not Resolved]
  - Body height decreased [Unknown]
  - Dyspnoea [Unknown]
  - Malaise [Not Recovered/Not Resolved]
  - Poisoning [Not Recovered/Not Resolved]
  - Panic attack [Unknown]
  - Abdominal pain upper [Not Recovered/Not Resolved]
  - Skin exfoliation [Unknown]
  - Condition aggravated [Unknown]
  - Lymphadenopathy [Not Recovered/Not Resolved]
  - Vulvovaginal swelling [Unknown]
  - Lung disorder [Unknown]
  - Skin ulcer [Unknown]

NARRATIVE: CASE EVENT DATE: 201805
